FAERS Safety Report 23877334 (Version 1)
Quarter: 2024Q2

REPORT INFORMATION
  Report Type: Spontaneous
  Country: US (occurrence: US)
  Receive Date: 20240521
  Receipt Date: 20240521
  Transmission Date: 20240716
  Serious: No
  Sender: FDA-Public Use
  Company Number: US-GRAVITIPHARMA-GRA-2302-US-SPO-0005

PATIENT
  Age: 58 Year
  Sex: Female
  Weight: 65 kg

DRUGS (3)
  1. GABAPENTIN [Suspect]
     Active Substance: GABAPENTIN
     Indication: Migraine
  2. GABAPENTIN [Suspect]
     Active Substance: GABAPENTIN
     Indication: Pain
  3. MELOXICAM [Concomitant]
     Active Substance: MELOXICAM
     Indication: Arthritis

REACTIONS (3)
  - Drug ineffective for unapproved indication [Unknown]
  - Product quality issue [Unknown]
  - Intentional product use issue [Unknown]
